FAERS Safety Report 11082458 (Version 3)
Quarter: 2016Q1

REPORT INFORMATION
  Report Type: Report from Study
  Country: JP (occurrence: JP)
  Receive Date: 20150501
  Receipt Date: 20160127
  Transmission Date: 20160525
  Serious: Yes (Hospitalization)
  Sender: FDA-Public Use
  Company Number: JP-CELGENE-JPN-2015046433

PATIENT
  Age: 77 Year
  Sex: Male
  Weight: 52 kg

DRUGS (13)
  1. EURONDIN [Concomitant]
     Indication: INSOMNIA
     Dosage: .8 MILLIGRAM
     Route: 048
     Dates: start: 20150115
  2. NOVORAPID [Concomitant]
     Active Substance: INSULIN ASPART
     Indication: TYPE 2 DIABETES MELLITUS
     Dosage: 29 LU
     Route: 058
     Dates: start: 20070612
  3. MAGMITT [Concomitant]
     Active Substance: MAGNESIUM OXIDE
     Indication: CONSTIPATION
     Route: 048
     Dates: start: 20140722
  4. LANSOPRAZOLE. [Concomitant]
     Active Substance: LANSOPRAZOLE
     Indication: PROPHYLAXIS AGAINST GASTROINTESTINAL ULCER
     Dosage: 990 MILLIGRAM
     Route: 048
     Dates: start: 20150323
  5. IRINOTECAN HYDROCHLORIDE. [Concomitant]
     Active Substance: IRINOTECAN HYDROCHLORIDE
     Indication: PRODUCT USED FOR UNKNOWN INDICATION
     Route: 065
     Dates: start: 20150610
  6. HIRUDOID [Concomitant]
     Active Substance: GLYCOSAMINOGLYCANS
     Indication: DRY SKIN
     Dosage: 12 MILLIGRAM
     Route: 061
     Dates: start: 20150221
  7. CONSTAN [Concomitant]
     Active Substance: ALPRAZOLAM
     Indication: INSOMNIA
     Route: 048
     Dates: start: 20150115
  8. FLIVAS [Concomitant]
     Active Substance: NAFTOPIDIL
     Indication: BENIGN PROSTATIC HYPERPLASIA
     Dosage: 15 MILLIGRAM
     Route: 048
     Dates: start: 20150219
  9. ABRAXANE [Suspect]
     Active Substance: PACLITAXEL
     Indication: METASTATIC GASTRIC CANCER
     Dosage: 400 MILLIGRAM
     Route: 041
     Dates: start: 20150408, end: 20150408
  10. ZOPICLONE [Concomitant]
     Active Substance: ZOPICLONE
     Indication: INSOMNIA
     Route: 048
     Dates: start: 20150219
  11. CODEINE PHOSPHATE HYDRATE [Concomitant]
     Active Substance: CODEINE PHOSPHATE
     Indication: COUGH
     Route: 048
     Dates: start: 20150407
  12. BETANIS [Concomitant]
     Active Substance: MIRABEGRON
     Indication: HYPERTONIC BLADDER
     Dosage: 75 MILLIGRAM
     Route: 048
     Dates: start: 20150219
  13. SENNOSIDE [Concomitant]
     Active Substance: SENNOSIDES
     Indication: CONSTIPATION
     Dosage: 60 MILLIGRAM
     Route: 048
     Dates: start: 20150412

REACTIONS (1)
  - Ataxia [Recovering/Resolving]

NARRATIVE: CASE EVENT DATE: 20150422
